FAERS Safety Report 25285998 (Version 2)
Quarter: 2025Q2

REPORT INFORMATION
  Report Type: Spontaneous
  Country: US (occurrence: US)
  Receive Date: 20250509
  Receipt Date: 20250602
  Transmission Date: 20250716
  Serious: No
  Sender: SANDOZ
  Company Number: US-SANDOZ-SDZ2025US028623

PATIENT
  Sex: Female

DRUGS (4)
  1. OMNITROPE [Suspect]
     Active Substance: SOMATROPIN
     Dosage: 0.1 MG, ONCE DAILY, (STRENGTH: 5 MG/1.5 ML SOLUTION FOR INJECTION IN CARTRIDGE)
     Route: 065
     Dates: start: 20250529, end: 20250529
  2. OMNITROPE [Suspect]
     Active Substance: SOMATROPIN
     Dosage: 0.1 MG, ONCE DAILY, (STRENGTH: 5 MG/1.5 ML SOLUTION FOR INJECTION IN CARTRIDGE)
     Route: 065
     Dates: start: 20250529, end: 20250529
  3. OMNITROPE [Suspect]
     Active Substance: SOMATROPIN
     Indication: Hypopituitarism
     Route: 065
  4. OMNITROPE [Suspect]
     Active Substance: SOMATROPIN
     Indication: Hypopituitarism
     Route: 065

REACTIONS (3)
  - Product knowledge deficit [Unknown]
  - Needle issue [Unknown]
  - Device leakage [Unknown]
